FAERS Safety Report 5934231-6 (Version None)
Quarter: 2008Q4

REPORT INFORMATION
  Report Type: 
  Country: None (occurrence: None)
  Receive Date: 20081029
  Receipt Date: 20081014
  Transmission Date: 20090506
  Serious: Yes (Hospitalization, Other)
  Sender: FDA-Public Use
  Company Number: PHHY2008FR18897

PATIENT
  Age: 39 Year
  Sex: Male

DRUGS (5)
  1. LAMISIL [Suspect]
     Dosage: 250MG PER DAY
     Route: 048
     Dates: start: 20070701, end: 20080811
  2. LAMISIL [Suspect]
     Indication: FUNGAL INFECTION
     Dosage: UNK
     Dates: start: 20080816, end: 20080820
  3. LAMISIL [Suspect]
     Dosage: UNK
     Dates: start: 20080101, end: 20080908
  4. ASPIRIN [Concomitant]
  5. VITAMIN B [Concomitant]
     Dosage: UNK
     Dates: start: 20070715, end: 20080820

REACTIONS (8)
  - ABDOMINAL PAIN [None]
  - ARTHRALGIA [None]
  - ASTHENIA [None]
  - BLOOD IMMUNOGLOBULIN A [None]
  - CONDITION AGGRAVATED [None]
  - DIARRHOEA [None]
  - HENOCH-SCHONLEIN PURPURA [None]
  - SPLENOMEGALY [None]
